FAERS Safety Report 17052430 (Version 1)
Quarter: 2019Q4

REPORT INFORMATION
  Report Type: Spontaneous
  Country: US (occurrence: US)
  Receive Date: 20191120
  Receipt Date: 20191120
  Transmission Date: 20200122
  Serious: Yes (Hospitalization)
  Sender: FDA-Public Use
  Company Number: US-ZYDUS-043175

PATIENT
  Age: 59 Year
  Sex: Male

DRUGS (3)
  1. LIDOCAINE/LIDOCAINE HYDROCHLORIDE [Concomitant]
     Indication: LARYNGEAL MASK AIRWAY INSERTION
     Route: 065
  2. ETOMIDATE. [Suspect]
     Active Substance: ETOMIDATE
     Indication: GENERAL ANAESTHESIA
     Route: 065
  3. PROPOFOL. [Suspect]
     Active Substance: PROPOFOL
     Indication: GENERAL ANAESTHESIA
     Route: 065

REACTIONS (4)
  - Dystonia [Recovered/Resolved]
  - Hypertension [Unknown]
  - Tachycardia [Unknown]
  - Autonomic nervous system imbalance [Recovered/Resolved]
